FAERS Safety Report 10540332 (Version 1)
Quarter: 2014Q4

REPORT INFORMATION
  Report Type: Spontaneous
  Country: US (occurrence: US)
  Receive Date: 20141024
  Receipt Date: 20141024
  Transmission Date: 20150529
  Serious: No
  Sender: FDA-Public Use
  Company Number: US-PFIZER INC-2014289276

PATIENT

DRUGS (1)
  1. NEURONTIN [Suspect]
     Active Substance: GABAPENTIN
     Dosage: UNK

REACTIONS (7)
  - Feeling abnormal [Unknown]
  - Myalgia [Unknown]
  - Memory impairment [Unknown]
  - Cognitive disorder [Unknown]
  - Arthralgia [Unknown]
  - Movement disorder [Unknown]
  - Somnolence [Unknown]
